FAERS Safety Report 4461337-3 (Version None)
Quarter: 2004Q3

REPORT INFORMATION
  Report Type: 
  Country: None (occurrence: None)
  Receive Date: 20040928
  Receipt Date: 20040920
  Transmission Date: 20050211
  Serious: Yes (Death)
  Sender: FDA-Public Use
  Company Number: US-JNJFOC-20040906568

PATIENT
  Age: 18 Year
  Sex: Female

DRUGS (1)
  1. DURAGESIC [Suspect]
     Indication: INTENTIONAL MISUSE
     Route: 049

REACTIONS (2)
  - INTENTIONAL MISUSE [None]
  - OVERDOSE [None]
